FAERS Safety Report 24327409 (Version 1)
Quarter: 2024Q3

REPORT INFORMATION
  Report Type: Spontaneous
  Country: CA (occurrence: CA)
  Receive Date: 20240917
  Receipt Date: 20240917
  Transmission Date: 20241017
  Serious: Yes (Hospitalization, Other)
  Sender: RANBAXY
  Company Number: CA-SUN PHARMACEUTICAL INDUSTRIES LTD-2024R1-467957

PATIENT
  Age: 53 Year
  Sex: Male

DRUGS (5)
  1. IMIQUIMOD [Suspect]
     Active Substance: IMIQUIMOD
     Indication: Herpes simplex
     Dosage: 5 PERCENT
     Route: 061
  2. VALACYCLOVIR [Suspect]
     Active Substance: VALACYCLOVIR HYDROCHLORIDE
     Indication: Herpes simplex
     Dosage: 4 WEEKS
     Route: 065
  3. ACYCLOVIR [Suspect]
     Active Substance: ACYCLOVIR
     Indication: Herpes simplex
     Dosage: 10 MILLIGRAM/KILOGRAM, TID
     Route: 042
  4. CIDOFOVIR [Suspect]
     Active Substance: CIDOFOVIR
     Indication: Herpes simplex
     Dosage: UNK
     Route: 061
  5. FOSCARNET [Suspect]
     Active Substance: FOSCARNET
     Indication: Herpes simplex
     Dosage: 1 PERCENT
     Route: 061

REACTIONS (2)
  - Drug ineffective [Unknown]
  - Drug resistance [Unknown]
